FAERS Safety Report 14908521 (Version 2)
Quarter: 2018Q3

REPORT INFORMATION
  Report Type: Spontaneous
  Country: US (occurrence: US)
  Receive Date: 20180517
  Receipt Date: 20180719
  Transmission Date: 20181010
  Serious: Yes (Hospitalization)
  Sender: FDA-Public Use
  Company Number: US-JNJFOC-20180517788

PATIENT
  Age: 51 Year
  Sex: Female
  Weight: 113.4 kg

DRUGS (1)
  1. SIMPONI ARIA [Suspect]
     Active Substance: GOLIMUMAB
     Indication: OSTEOARTHRITIS
     Route: 042
     Dates: start: 201610

REACTIONS (3)
  - Product use in unapproved indication [Unknown]
  - Diverticulitis [Unknown]
  - Off label use [Unknown]

NARRATIVE: CASE EVENT DATE: 201610
